FAERS Safety Report 7688856-0 (Version None)
Quarter: 2011Q3

REPORT INFORMATION
  Report Type: 
  Country: None (occurrence: None)
  Receive Date: 20110817
  Receipt Date: 20110808
  Transmission Date: 20111222
  Serious: Yes (Hospitalization)
  Sender: FDA-Public Use
  Company Number: PHEH2011US01075

PATIENT
  Sex: Female
  Weight: 68.27 kg

DRUGS (1)
  1. EXJADE [Suspect]
     Indication: NEOPLASM
     Dosage: 2000 MG DAILY
     Route: 048
     Dates: start: 20091219

REACTIONS (2)
  - BACK INJURY [None]
  - FALL [None]
